FAERS Safety Report 4563410-8 (Version None)
Quarter: 2005Q1

REPORT INFORMATION
  Report Type: 
  Country: None (occurrence: None)
  Receive Date: 20050128
  Receipt Date: 20040414
  Transmission Date: 20050727
  Serious: No
  Sender: FDA-Public Use
  Company Number: US-GLAXOSMITHKLINE-A0507155A

PATIENT
  Age: 44 Year
  Sex: Female

DRUGS (3)
  1. WELLBUTRIN [Suspect]
     Indication: DEPRESSION
     Dosage: 150MG THREE TIMES PER DAY
     Route: 048
  2. CELEXA [Concomitant]
  3. TRAZODONE HCL [Concomitant]

REACTIONS (1)
  - DRUG INEFFECTIVE [None]
